FAERS Safety Report 7710347-9 (Version None)
Quarter: 2011Q3

REPORT INFORMATION
  Report Type: 
  Country: None (occurrence: None)
  Receive Date: 20110825
  Receipt Date: 20110511
  Transmission Date: 20111222
  Serious: No
  Sender: FDA-Public Use
  Company Number: US-MYLANLABS-2011S1009972

PATIENT
  Age: 74 Year
  Sex: Female

DRUGS (7)
  1. LANSOPRAZOLE [Suspect]
     Indication: GASTROOESOPHAGEAL REFLUX DISEASE
     Dates: start: 20101001
  2. IMDUR [Concomitant]
  3. VITAMIN B12 W/VITAMIN B6/FOLIC ACID [Concomitant]
  4. MAGNESIUM [Concomitant]
  5. ALLOPURINOL [Concomitant]
  6. PLAVIX [Concomitant]
     Dates: start: 20010101
  7. MAALOX [Concomitant]

REACTIONS (2)
  - ARTHRITIS [None]
  - ARTHRALGIA [None]
